FAERS Safety Report 22526723 (Version 1)
Quarter: 2023Q2

REPORT INFORMATION
  Report Type: Spontaneous
  Country: US (occurrence: US)
  Receive Date: 20230606
  Receipt Date: 20230606
  Transmission Date: 20230722
  Serious: No
  Sender: FDA-Public Use
  Company Number: US-TEVA-2023-US-2890583

PATIENT
  Age: 56 Year
  Sex: Female
  Weight: 86.18 kg

DRUGS (8)
  1. AJOVY [Suspect]
     Active Substance: FREMANEZUMAB-VFRM
     Indication: Migraine
     Dosage: 225/1.5 MG/ML, EVERY 28 DAYS
     Route: 065
     Dates: start: 20220816
  2. AJOVY [Suspect]
     Active Substance: FREMANEZUMAB-VFRM
  3. LETROZOLE [Suspect]
     Active Substance: LETROZOLE
     Indication: Neoplasm malignant
     Route: 065
  4. TAMOXIFEN [Concomitant]
     Active Substance: TAMOXIFEN
     Indication: Product used for unknown indication
     Dosage: 20MG
     Route: 065
  5. ELIQUIS [Concomitant]
     Active Substance: APIXABAN
     Indication: Product used for unknown indication
     Dosage: 10 MILLIGRAM DAILY; 5MG, TWICE DAILY
     Route: 065
  6. CALCIUM CARBONATE [Concomitant]
     Active Substance: CALCIUM CARBONATE
     Indication: Product used for unknown indication
     Dosage: 1200 MILLIGRAM DAILY; 600MG, TWICE DAILY
     Route: 065
  7. VITAMIN D3 [Concomitant]
     Active Substance: CHOLECALCIFEROL
     Indication: Product used for unknown indication
     Dosage: 1600 IU (INTERNATIONAL UNIT) DAILY; 1600 IU DAILY
     Route: 065
  8. MAGNESIUM [Concomitant]
     Active Substance: MAGNESIUM
     Indication: Product used for unknown indication
     Dosage: 500 MILLIGRAM DAILY; 500MG, DAILY
     Route: 065

REACTIONS (7)
  - Tendonitis [Unknown]
  - Epicondylitis [Unknown]
  - Tendon rupture [Unknown]
  - Periarthritis [Unknown]
  - Musculoskeletal stiffness [Unknown]
  - Stress fracture [Unknown]
  - Pain in extremity [Unknown]
